FAERS Safety Report 14018756 (Version 6)
Quarter: 2018Q2

REPORT INFORMATION
  Report Type: Spontaneous
  Country: US (occurrence: US)
  Receive Date: 20170928
  Receipt Date: 20180523
  Transmission Date: 20180711
  Serious: No
  Sender: FDA-Public Use
  Company Number: US-BRISTOL-MYERS SQUIBB COMPANY-BMS-2017-086304

PATIENT
  Age: 40 Year
  Sex: Female

DRUGS (1)
  1. SPRYCEL [Suspect]
     Active Substance: DASATINIB
     Indication: CHRONIC MYELOID LEUKAEMIA
     Dosage: 100 MG, QD
     Route: 048
     Dates: start: 20170831

REACTIONS (11)
  - Fatigue [Unknown]
  - Bone pain [Not Recovered/Not Resolved]
  - Myalgia [Unknown]
  - Nausea [Not Recovered/Not Resolved]
  - Eye pruritus [Unknown]
  - Bone pain [Not Recovered/Not Resolved]
  - Hair colour changes [Unknown]
  - Premature menopause [Unknown]
  - Headache [Unknown]
  - Ocular hyperaemia [Unknown]
  - Alopecia [Unknown]

NARRATIVE: CASE EVENT DATE: 20170915
